FAERS Safety Report 9795690 (Version 1)
Quarter: 2014Q1

REPORT INFORMATION
  Report Type: Report from Study
  Country: US (occurrence: US)
  Receive Date: 20140103
  Receipt Date: 20140103
  Transmission Date: 20141002
  Serious: Yes (Death, Other)
  Sender: FDA-Public Use
  Company Number: US-ROCHE-1327999

PATIENT
  Sex: 0

DRUGS (11)
  1. RITUXIMAB [Suspect]
     Indication: WALDENSTROM^S MACROGLOBULINAEMIA
     Dosage: ON DAY 8 AND 22 IN 35 DAY CYCLE (B-R GROUP)
     Route: 042
  2. RITUXIMAB [Suspect]
     Dosage: ON DAY 1 (R-CVAD GROUP)
     Route: 042
  3. RITUXIMAB [Suspect]
     Dosage: FOR 4 (2CDA-CY-RIT GROUP)
     Route: 042
  4. CYCLOPHOSPHAMIDE [Suspect]
     Indication: WALDENSTROM^S MACROGLOBULINAEMIA
     Dosage: 8 DOSES (R-CVAD GROUP)
     Route: 042
  5. CYCLOPHOSPHAMIDE [Suspect]
     Dosage: FOR 5 DAYS (2CDA-CY-RIT GROUP)
     Route: 048
  6. VINCRISTINE [Suspect]
     Indication: WALDENSTROM^S MACROGLOBULINAEMIA
     Route: 065
  7. DOXORUBICIN [Suspect]
     Indication: WALDENSTROM^S MACROGLOBULINAEMIA
     Dosage: ON DAY 1-4 (R-CVAD GROUP)
     Route: 042
  8. DEXAMETHASONE [Suspect]
     Indication: WALDENSTROM^S MACROGLOBULINAEMIA
     Dosage: ON DAY 1-4, 9-12, 17-20 (R-CVAD GROUP)
     Route: 065
  9. BORTEZOMIB [Suspect]
     Indication: WALDENSTROM^S MACROGLOBULINAEMIA
     Dosage: ON DAY 1, 8, 15, 22 (R-B GROUP)
     Route: 042
  10. CLADRIBINE [Suspect]
     Indication: WALDENSTROM^S MACROGLOBULINAEMIA
     Dosage: FOR 5 DAYS (2CDA-CY-RIT GROUP)
     Route: 042
  11. FILGRASTIM [Concomitant]
     Route: 065

REACTIONS (11)
  - Death [Fatal]
  - Neutropenia [Unknown]
  - Fatigue [Unknown]
  - Anaemia [Unknown]
  - Infection [Unknown]
  - Nausea [Unknown]
  - Vomiting [Unknown]
  - Constipation [Unknown]
  - Diarrhoea [Unknown]
  - Neuropathy peripheral [Unknown]
  - Off label use [Unknown]
